FAERS Safety Report 5096718-0 (Version None)
Quarter: 2006Q3

REPORT INFORMATION
  Report Type: 
  Country: None (occurrence: None)
  Receive Date: 20060831
  Receipt Date: 20060821
  Transmission Date: 20061208
  Serious: Yes (Death)
  Sender: FDA-Public Use
  Company Number: 2006JP002391

PATIENT
  Sex: Male
  Weight: 78.5 kg

DRUGS (8)
  1. PROGRAF [Suspect]
     Indication: RENAL TRANSPLANT
     Dosage: SEE IMAGE
     Route: 042
     Dates: start: 20040301
  2. CELLCEPT [Suspect]
     Indication: RENAL TRANSPLANT
     Dosage: 500 MG, BID, ORAL
     Route: 048
     Dates: start: 20040301, end: 20060112
  3. SIMULECT [Suspect]
     Indication: RENAL TRANSPLANT
     Dosage: 20 MG, UID/QD, IV NOS
     Route: 042
     Dates: start: 20040303, end: 20040303
  4. MEDROL ACETATE [Concomitant]
  5. LANSOPRAZOLE [Concomitant]
  6. AMLODIPINE BESYLATE [Concomitant]
  7. URINORM (BENZBROMARONE) [Concomitant]
  8. BLOPRESS (CANDESARTAN CILEXETIL) [Concomitant]

REACTIONS (9)
  - COMPLICATIONS OF TRANSPLANTED KIDNEY [None]
  - EPSTEIN-BARR VIRUS INFECTION [None]
  - HAEMODIALYSIS [None]
  - INFECTION IN AN IMMUNOCOMPROMISED HOST [None]
  - LYMPHOPROLIFERATIVE DISORDER [None]
  - METASTASES TO LUNG [None]
  - PNEUMOCYSTIS JIROVECI PNEUMONIA [None]
  - RENAL FAILURE [None]
  - T-CELL LYMPHOMA [None]
